FAERS Safety Report 18538026 (Version 3)
Quarter: 2022Q1

REPORT INFORMATION
  Report Type: Spontaneous
  Country: US (occurrence: US)
  Receive Date: 20201123
  Receipt Date: 20220117
  Transmission Date: 20220424
  Serious: Yes (Other)
  Sender: FDA-Public Use
  Company Number: US-BEH-2020125272

PATIENT
  Age: 54 Year
  Sex: Female

DRUGS (19)
  1. HAEGARDA [Suspect]
     Active Substance: HUMAN C1-ESTERASE INHIBITOR
     Indication: Hereditary angioedema
     Dosage: 4000 INTERNATIONAL UNIT, BIW (2 X 2000)
     Route: 058
     Dates: start: 2019
  2. HAEGARDA [Suspect]
     Active Substance: HUMAN C1-ESTERASE INHIBITOR
     Indication: Prophylaxis
     Dosage: UNK
     Route: 058
  3. HAEGARDA [Suspect]
     Active Substance: HUMAN C1-ESTERASE INHIBITOR
     Dosage: UNK
     Route: 058
  4. HAEGARDA [Suspect]
     Active Substance: HUMAN C1-ESTERASE INHIBITOR
     Dosage: 7000 INTERNATIONAL UNIT
     Route: 058
     Dates: start: 20190226
  5. HAEGARDA [Suspect]
     Active Substance: HUMAN C1-ESTERASE INHIBITOR
     Indication: Hereditary angioedema
     Dosage: 3000 INTERNATIONAL UNIT, BIW
     Route: 058
     Dates: start: 2019
  6. HAEGARDA [Suspect]
     Active Substance: HUMAN C1-ESTERASE INHIBITOR
     Indication: Prophylaxis
     Dosage: 7000 INTERNATIONAL UNIT, BIW
     Route: 058
     Dates: start: 20190226
  7. HYDROCHLOROTHIAZIDE [Concomitant]
     Active Substance: HYDROCHLOROTHIAZIDE
     Route: 065
  8. CARBAMAZEPINE [Concomitant]
     Active Substance: CARBAMAZEPINE
     Route: 065
  9. EPINEPHRINE [Concomitant]
     Active Substance: EPINEPHRINE
     Route: 065
  10. EPITOL [Concomitant]
     Active Substance: CARBAMAZEPINE
     Route: 065
  11. FIRAZYR [Concomitant]
     Active Substance: ICATIBANT ACETATE
     Route: 065
  12. LIDOCAINE;PRILOCAINE [Concomitant]
     Route: 065
  13. RANITIDINE HYDROCHLORIDE [Concomitant]
     Active Substance: RANITIDINE HYDROCHLORIDE
     Route: 065
  14. VENTOLIN HFA [Concomitant]
     Active Substance: ALBUTEROL SULFATE
     Route: 065
  15. XARELTO [Concomitant]
     Active Substance: RIVAROXABAN
     Route: 065
  16. ARIPIPRAZOLE [Concomitant]
     Active Substance: ARIPIPRAZOLE
     Dosage: 2 MILLIGRAM
     Route: 065
  17. HYDROCODONE [Concomitant]
     Active Substance: HYDROCODONE
     Dosage: 7.5/325
     Route: 065
  18. TEGRETOL [Concomitant]
     Active Substance: CARBAMAZEPINE
     Route: 065
  19. CEPHALEXIN [Concomitant]
     Active Substance: CEPHALEXIN
     Route: 065

REACTIONS (25)
  - Hereditary angioedema [Unknown]
  - No adverse event [Unknown]
  - Circumstance or information capable of leading to medication error [Unknown]
  - Fatigue [Unknown]
  - Memory impairment [Unknown]
  - Peripheral swelling [Unknown]
  - Arthritis [Unknown]
  - Pruritus [Unknown]
  - Dry skin [Unknown]
  - Thrombosis [Unknown]
  - Wound [Unknown]
  - Wound complication [Unknown]
  - Wound secretion [Unknown]
  - Wound haemorrhage [Unknown]
  - Contusion [Unknown]
  - Dizziness [Unknown]
  - Muscle spasms [Unknown]
  - Renal pain [Unknown]
  - Fall [Unknown]
  - Gait disturbance [Unknown]
  - Head injury [Unknown]
  - Headache [Unknown]
  - Pollakiuria [Unknown]
  - Urge incontinence [Unknown]
  - Hereditary angioedema [Unknown]

NARRATIVE: CASE EVENT DATE: 20201101
